FAERS Safety Report 8992983 (Version 2)
Quarter: 2013Q4

REPORT INFORMATION
  Report Type: Report from Study
  Country: JP (occurrence: JP)
  Receive Date: 20130102
  Receipt Date: 20131218
  Transmission Date: 20140711
  Serious: Yes (Hospitalization)
  Sender: FDA-Public Use
  Company Number: PHHY2012JP117739

PATIENT
  Age: 60 Year
  Sex: Female

DRUGS (2)
  1. EVEROLIMUS [Suspect]
     Indication: PANCREATIC NEUROENDOCRINE TUMOUR
     Dosage: UNK UKN, UNK
     Route: 048
  2. OCTREOTIDE ACETATE [Concomitant]
     Dosage: UNK UKN, UNK

REACTIONS (10)
  - General physical health deterioration [Unknown]
  - Renal failure acute [Recovering/Resolving]
  - Renal disorder [Recovered/Resolved]
  - Enuresis [Recovered/Resolved]
  - Infection [Unknown]
  - Urine output decreased [Unknown]
  - Stomatitis [Unknown]
  - Nausea [Unknown]
  - Vomiting [Unknown]
  - Decreased appetite [Unknown]
